FAERS Safety Report 7635495-3 (Version None)
Quarter: 2011Q3

REPORT INFORMATION
  Report Type: 
  Country: None (occurrence: None)
  Receive Date: 20110726
  Receipt Date: 20110720
  Transmission Date: 20111222
  Serious: Yes (Other)
  Sender: FDA-Public Use
  Company Number: DE-SANOFI-AVENTIS-2011SA046141

PATIENT
  Age: 48 Year
  Sex: Male
  Weight: 100 kg

DRUGS (2)
  1. NEBIVOLOL HCL [Suspect]
     Indication: HYPERTENSION
     Route: 048
     Dates: start: 20101001, end: 20110101
  2. MULTAQ [Suspect]
     Route: 048
     Dates: end: 20110101

REACTIONS (2)
  - DIARRHOEA [None]
  - BLOOD PRESSURE DECREASED [None]
